FAERS Safety Report 7357341-8 (Version None)
Quarter: 2011Q1

REPORT INFORMATION
  Report Type: 
  Country: None (occurrence: None)
  Receive Date: 20110311
  Receipt Date: 20110311
  Transmission Date: 20110831
  Serious: Yes (Other)
  Sender: FDA-Public Use
  Company Number: None

PATIENT

DRUGS (2)
  1. AMIODARONE HCL [Suspect]
     Indication: ATRIAL FIBRILLATION
     Dosage: IV DRIP
     Route: 041
  2. AMIODARONE HCL [Suspect]
     Indication: ATRIAL FIBRILLATION
     Dosage: IV BOLUS
     Route: 040

REACTIONS (1)
  - PHLEBITIS [None]
